FAERS Safety Report 5600215-0 (Version None)
Quarter: 2008Q1

REPORT INFORMATION
  Report Type: 
  Country: None (occurrence: None)
  Receive Date: 20080123
  Receipt Date: 20080118
  Transmission Date: 20080703
  Serious: Yes (Life-Threatening)
  Sender: FDA-Public Use
  Company Number: JP-ASTRAZENECA-2008AP00112

PATIENT
  Age: 85 Year
  Sex: Male
  Weight: 56.5 kg

DRUGS (6)
  1. MEROPENEM [Suspect]
     Indication: SKIN INFECTION
     Route: 042
     Dates: start: 20071023, end: 20071031
  2. NEUROTAN [Concomitant]
     Route: 048
     Dates: start: 20060602, end: 20071024
  3. ASPIRIN [Concomitant]
     Route: 048
     Dates: start: 20060602
  4. TORSEMIDE [Concomitant]
     Route: 048
     Dates: start: 20060602, end: 20071024
  5. GASTER D [Concomitant]
     Route: 048
     Dates: start: 20060602
  6. URSO 250 [Concomitant]
     Route: 048
     Dates: start: 20060602

REACTIONS (1)
  - HYPERKALAEMIA [None]
